FAERS Safety Report 23215816 (Version 1)
Quarter: 2023Q4

REPORT INFORMATION
  Report Type: Spontaneous
  Country: US (occurrence: US)
  Receive Date: 20231122
  Receipt Date: 20231122
  Transmission Date: 20240110
  Serious: No
  Sender: FDA-Public Use
  Company Number: US-BRISTOL-MYERS SQUIBB COMPANY-2023-167484

PATIENT
  Age: 56 Year
  Sex: Female

DRUGS (2)
  1. SOTYKTU [Suspect]
     Active Substance: DEUCRAVACITINIB
     Indication: Psoriasis
     Route: 048
     Dates: start: 202306
  2. SOTYKTU [Suspect]
     Active Substance: DEUCRAVACITINIB
     Indication: Melanosis

REACTIONS (3)
  - Pruritus [Unknown]
  - Burning sensation [Unknown]
  - Pain [Unknown]
